FAERS Safety Report 5682730-7 (Version None)
Quarter: 2008Q1

REPORT INFORMATION
  Report Type: 
  Country: None (occurrence: None)
  Receive Date: 20080326
  Receipt Date: 20080326
  Transmission Date: 20080703
  Serious: No
  Sender: FDA-Public Use
  Company Number: None

PATIENT
  Age: 72 Year
  Sex: Male
  Weight: 127.4608 kg

DRUGS (1)
  1. DIABETA [Suspect]
     Indication: BLOOD GLUCOSE INCREASED
     Dosage: 1.25 MG TWICE A DAY PO
     Route: 048
     Dates: start: 20080314, end: 20080316

REACTIONS (7)
  - BLOOD GLUCOSE INCREASED [None]
  - DRUG EFFECT DECREASED [None]
  - DRUG HYPERSENSITIVITY [None]
  - HEART RATE DECREASED [None]
  - LETHARGY [None]
  - PHARMACEUTICAL PRODUCT COMPLAINT [None]
  - PULSE ABNORMAL [None]
